FAERS Safety Report 12207250 (Version 1)
Quarter: 2016Q1

REPORT INFORMATION
  Report Type: Spontaneous
  Country: US (occurrence: US)
  Receive Date: 20160324
  Receipt Date: 20160324
  Transmission Date: 20160526
  Serious: No
  Sender: FDA-Public Use
  Company Number: US-TORRENT-00000926

PATIENT
  Sex: Female

DRUGS (4)
  1. LEXAPRO [Concomitant]
     Active Substance: ESCITALOPRAM OXALATE
     Dosage: 1.5 TABS DAILY FOR WEEK - IN PROCESS OF DECREASING THIS MEDICATION TO 0 OVER THE NEXT 4 WEEKS
     Route: 065
  2. INDERAL [Concomitant]
     Active Substance: PROPRANOLOL HYDROCHLORIDE
     Indication: TREMOR
     Dosage: DOSAGE UNKNOWN
  3. EFFEXOR [Concomitant]
     Active Substance: VENLAFAXINE HYDROCHLORIDE
     Dosage: 1 PILL DAILY - IN PROCESS OF INCREASING THIS TO EVENTUALLY 4 PILLS DAILY OVER 4 WEEKS.
     Route: 065
  4. LAMOTRIGINE- LAMOTRIGINE TABLET [Suspect]
     Active Substance: LAMOTRIGINE
     Indication: DEPRESSION
     Dosage: 1.5 TABLETS TWICE DAILY FOR LAST MONTH.PREVIOUSLY 1 TABLET TWICE DAILY.
     Route: 065

REACTIONS (7)
  - Fatigue [Unknown]
  - Dry mouth [Unknown]
  - Abdominal pain upper [Unknown]
  - Coordination abnormal [Unknown]
  - Sleep disorder [Unknown]
  - Tremor [Unknown]
  - Somnolence [Unknown]
